FAERS Safety Report 4741609-5 (Version None)
Quarter: 2005Q3

REPORT INFORMATION
  Report Type: 
  Country: None (occurrence: None)
  Receive Date: 20050808
  Receipt Date: 20050727
  Transmission Date: 20060218
  Serious: Yes (Death)
  Sender: FDA-Public Use
  Company Number: JP_050807199

PATIENT
  Age: 60 Year
  Sex: Female
  Weight: 59 kg

DRUGS (10)
  1. ZYPREXA [Suspect]
     Indication: SCHIZOPHRENIA
     Dosage: 10 MG DAY
     Dates: start: 20040604
  2. HALOPERIDOL [Concomitant]
  3. CHLORPROMAZINE HCL [Concomitant]
  4. HIRNAMIN (LEVOMEPROMAZINE) [Concomitant]
  5. AKINETON [Concomitant]
  6. HIBERNA (PROMETHAZINE HYDROCHLORIDE) [Concomitant]
  7. SHINLUCK (SODIUM PICOSULFATE) [Concomitant]
  8. ROHYPNOL (FLUNITRAZEPAM) [Concomitant]
  9. DIAZEPAM [Concomitant]
  10. VITAMIN A [Concomitant]

REACTIONS (3)
  - CARDIO-RESPIRATORY ARREST [None]
  - FALL [None]
  - INJURY ASPHYXIATION [None]
